FAERS Safety Report 5062397-1 (Version None)
Quarter: 2006Q3

REPORT INFORMATION
  Report Type: 
  Country: None (occurrence: None)
  Receive Date: 20060721
  Receipt Date: 20060706
  Transmission Date: 20061208
  Serious: Yes (Hospitalization)
  Sender: FDA-Public Use
  Company Number: JP200604000316

PATIENT
  Age: 35 Year
  Sex: Female
  Weight: 62.6 kg

DRUGS (6)
  1. ZYPREXA [Suspect]
     Indication: SCHIZOPHRENIA
     Dosage: 5MG, DAILY (1/D); ORAL, SEE IMAGE
     Route: 048
     Dates: start: 20050513, end: 20050519
  2. ZYPREXA [Suspect]
     Indication: SCHIZOPHRENIA
     Dosage: 5MG, DAILY (1/D); ORAL, SEE IMAGE
     Route: 048
     Dates: start: 20050520, end: 20050526
  3. ZYPREXA [Suspect]
     Indication: SCHIZOPHRENIA
     Dosage: 5MG, DAILY (1/D); ORAL, SEE IMAGE
     Route: 048
     Dates: start: 20050527, end: 20050602
  4. ZYPREXA [Suspect]
     Indication: SCHIZOPHRENIA
     Dosage: 5MG, DAILY (1/D); ORAL, SEE IMAGE
     Route: 048
     Dates: start: 20050603, end: 20060325
  5. DEPAS (ETIZOLAM) [Concomitant]
  6. SENEVACUL (SENNOSIDE A+B) [Concomitant]

REACTIONS (14)
  - ALANINE AMINOTRANSFERASE INCREASED [None]
  - ASPARTATE AMINOTRANSFERASE INCREASED [None]
  - BLOOD CREATINE PHOSPHOKINASE INCREASED [None]
  - BLOOD GLUCOSE INCREASED [None]
  - BLOOD LACTATE DEHYDROGENASE INCREASED [None]
  - BLOOD SODIUM DECREASED [None]
  - BLOOD SODIUM INCREASED [None]
  - CONVULSION [None]
  - GAMMA-GLUTAMYLTRANSFERASE INCREASED [None]
  - LOSS OF CONSCIOUSNESS [None]
  - MYOGLOBIN BLOOD INCREASED [None]
  - RHABDOMYOLYSIS [None]
  - WATER INTOXICATION [None]
  - WHITE BLOOD CELL COUNT DECREASED [None]
